FAERS Safety Report 9133380 (Version 1)
Quarter: 2013Q1

REPORT INFORMATION
  Report Type: Report from Study
  Country: US (occurrence: US)
  Receive Date: 20130129
  Receipt Date: 20130129
  Transmission Date: 20140127
  Serious: No
  Sender: FDA-Public Use
  Company Number: US-ABBOTT-12P-163-0930633-00

PATIENT
  Sex: Female
  Weight: 68.1 kg

DRUGS (12)
  1. HUMIRA 40 MG/0.8 ML PEN [Suspect]
     Indication: RHEUMATOID ARTHRITIS
     Dates: start: 20120414, end: 20120428
  2. CELEBREX [Concomitant]
     Indication: RHEUMATOID ARTHRITIS
  3. PLAQUENIL [Concomitant]
     Indication: RHEUMATOID ARTHRITIS
  4. METHOTREXATE [Concomitant]
     Indication: RHEUMATOID ARTHRITIS
  5. ESTRADIOL [Concomitant]
     Indication: HORMONE REPLACEMENT THERAPY
  6. NEXIUM [Concomitant]
     Indication: PERFORATED ULCER
  7. VITAMIN E [Concomitant]
     Indication: VITAMIN SUPPLEMENTATION
  8. VITAMIN D2 [Concomitant]
     Indication: VITAMIN SUPPLEMENTATION
  9. VITAMIN B12 [Concomitant]
     Indication: VITAMIN SUPPLEMENTATION
  10. ROBAXIN [Concomitant]
     Indication: MUSCLE SPASMS
  11. CYMBALTA [Concomitant]
     Indication: FIBROMYALGIA
  12. RESTORIL [Concomitant]
     Indication: INSOMNIA

REACTIONS (6)
  - Ear swelling [Not Recovered/Not Resolved]
  - Infection [Not Recovered/Not Resolved]
  - Erythema [Not Recovered/Not Resolved]
  - Otorrhoea [Not Recovered/Not Resolved]
  - Local swelling [Not Recovered/Not Resolved]
  - Weight increased [Not Recovered/Not Resolved]
